FAERS Safety Report 6998923-2 (Version None)
Quarter: 2010Q3

REPORT INFORMATION
  Report Type: 
  Country: None (occurrence: None)
  Receive Date: 20100920
  Receipt Date: 20071017
  Transmission Date: 20110219
  Serious: Yes (Hospitalization, Other)
  Sender: FDA-Public Use
  Company Number: US-ASTRAZENECA-2006UW22081

PATIENT
  Age: 7361 Day
  Sex: Female
  Weight: 81.6 kg

DRUGS (8)
  1. SEROQUEL [Suspect]
     Dosage: 25-225 MG
     Route: 048
     Dates: start: 20030816
  2. LEXAPRO [Concomitant]
     Indication: DEPRESSION
     Route: 048
     Dates: start: 20030813
  3. IBUPROFEN [Concomitant]
     Indication: AFTERBIRTH PAIN
     Route: 048
     Dates: start: 20030814
  4. ALBUTEROL [Concomitant]
     Indication: WHEEZING
     Dosage: 90 MCG/ACTUATION 2 PUFF DAILY (3-4 HOURS AS AND WHEN REQUIRED)
     Dates: start: 20060101
  5. ALBUTEROL [Concomitant]
     Indication: COUGH
     Dosage: 90 MCG/ACTUATION 2 PUFF DAILY (3-4 HOURS AS AND WHEN REQUIRED)
     Dates: start: 20060101
  6. ALBUTEROL [Concomitant]
     Indication: ASTHMA
     Dosage: 90 MCG/ACTUATION 2 PUFF DAILY (3-4 HOURS AS AND WHEN REQUIRED)
     Dates: start: 20060101
  7. TYLENOL W/ CODEINE NO. 3 [Concomitant]
     Indication: AFTERBIRTH PAIN
     Dates: start: 20030101
  8. DEPAKOTE ER [Concomitant]
     Dosage: 1000-2000 MG
     Route: 048
     Dates: start: 20030815

REACTIONS (1)
  - PANCREATITIS [None]
